FAERS Safety Report 5104075-6 (Version None)
Quarter: 2006Q3

REPORT INFORMATION
  Report Type: 
  Country: None (occurrence: None)
  Receive Date: 20060911
  Receipt Date: 20060316
  Transmission Date: 20061208
  Serious: Yes (Other)
  Sender: FDA-Public Use
  Company Number: 2006021956

PATIENT
  Age: 66 Year
  Sex: Male
  Weight: 90 kg

DRUGS (5)
  1. SUTENT [Suspect]
     Indication: METASTATIC RENAL CELL CARCINOMA
     Dosage: SEE IMAGE
     Route: 048
     Dates: start: 20060113, end: 20060210
  2. SUTENT [Suspect]
     Indication: METASTATIC RENAL CELL CARCINOMA
     Dosage: SEE IMAGE
     Route: 048
     Dates: start: 20060223
  3. SERTRALINE [Concomitant]
  4. TEGASEROD [Concomitant]
  5. ESOMEPRAZOLE MAGNESIUM [Concomitant]

REACTIONS (4)
  - COUGH [None]
  - TONGUE DISORDER [None]
  - VITREOUS DETACHMENT [None]
  - VITREOUS HAEMORRHAGE [None]
